FAERS Safety Report 9286946 (Version 1)
Quarter: 2013Q2

REPORT INFORMATION
  Report Type: Spontaneous
  Country: US (occurrence: None)
  Receive Date: 20130508
  Receipt Date: 20130508
  Transmission Date: 20140414
  Serious: Yes (Other)
  Sender: FDA-Public Use
  Company Number: TPA2013A03301

PATIENT
  Age: 60 Year
  Sex: Female

DRUGS (8)
  1. EDARBI [Suspect]
     Indication: HYPERTENSION
     Dosage: 80 MG, 1 IN 1 D, PER ORAL
     Route: 048
     Dates: end: 201205
  2. BYETTA (EXENATIDE) [Concomitant]
  3. ASPIRIN(ACETYLSALICYLIC ACID) [Concomitant]
  4. SYNTHROID [Suspect]
  5. LEXAPRO(ESCITALOPRAM OXALATE) [Concomitant]
  6. ADVAIR(FLUTICASONE PROPIONATE, SALMETEROL XINAFOATE) [Concomitant]
  7. CRESTOR(ROSUVASTATIN CALCIUM) [Concomitant]
  8. OMNARIS (CICLESONIDE) [Concomitant]

REACTIONS (1)
  - Idiopathic thrombocytopenic purpura [None]
